FAERS Safety Report 5735814-9 (Version None)
Quarter: 2008Q2

REPORT INFORMATION
  Report Type: 
  Country: None (occurrence: None)
  Receive Date: 20080508
  Receipt Date: 20080508
  Transmission Date: 20081010
  Serious: No
  Sender: FDA-Public Use
  Company Number: None

PATIENT
  Age: 25 Year
  Sex: Male
  Weight: 39.0093 kg

DRUGS (1)
  1. CREST PRO-HEALTH MOUTHWASH [Suspect]
     Indication: DENTAL DISORDER PROPHYLAXIS
     Dosage: TWICE A DAY
     Dates: start: 20060501, end: 20060715

REACTIONS (1)
  - TOOTH DISCOLOURATION [None]
